FAERS Safety Report 5959895-2 (Version None)
Quarter: 2008Q4

REPORT INFORMATION
  Report Type: 
  Country: None (occurrence: None)
  Receive Date: 20081120
  Receipt Date: 20081113
  Transmission Date: 20090506
  Serious: Yes (Other)
  Sender: FDA-Public Use
  Company Number: US-GENENTECH-270842

PATIENT
  Sex: Female

DRUGS (4)
  1. LUCENTIS [Suspect]
     Indication: MACULAR DEGENERATION
     Dosage: 0.5 MG, UNK
     Route: 031
     Dates: start: 20081015
  2. CAPTOPRIL [Concomitant]
     Indication: DRUG USE FOR UNKNOWN INDICATION
  3. ZETIA [Concomitant]
     Indication: DRUG USE FOR UNKNOWN INDICATION
  4. PROPRANOLOL [Concomitant]
     Indication: DRUG USE FOR UNKNOWN INDICATION

REACTIONS (1)
  - EYE INFLAMMATION [None]
